FAERS Safety Report 7670025-1 (Version None)
Quarter: 2011Q3

REPORT INFORMATION
  Report Type: 
  Country: None (occurrence: None)
  Receive Date: 20110808
  Receipt Date: 20110802
  Transmission Date: 20111222
  Serious: Yes (Hospitalization)
  Sender: FDA-Public Use
  Company Number: US-BRISTOL-MYERS SQUIBB COMPANY-15940745

PATIENT
  Age: 61 Year
  Sex: Male
  Weight: 88 kg

DRUGS (1)
  1. IPILIMUMAB [Suspect]
     Indication: MALIGNANT MELANOMA
     Dosage: LAST DOSE:06JUL11 CYCLE 21DAYS.INDUCTION THERAPY(CYCLES1-4) 10MG/KG OVER 90MIN ON DAY1
     Route: 042
     Dates: start: 20110706

REACTIONS (6)
  - LUNG INFECTION [None]
  - DYSPNOEA [None]
  - BRONCHITIS [None]
  - COUGH [None]
  - HYPOKALAEMIA [None]
  - PAIN [None]
